FAERS Safety Report 10371624 (Version 1)
Quarter: 2014Q1

REPORT INFORMATION
  Report Type: Spontaneous
  Country: US (occurrence: None)
  Receive Date: 20140306
  Receipt Date: 20140306
  Transmission Date: 20141002
  Serious: Yes (Other)
  Sender: FDA-Public Use
  Company Number: 163-21880-12103806

PATIENT
  Age: 59 Year
  Sex: Male
  Weight: 87.18 kg

DRUGS (22)
  1. REVLIMID (LENALIDOMIDE) (25 MILLIGRAM, CAPSULES) [Suspect]
     Indication: PLASMA CELL MYELOMA
     Dosage: 25 MG, 21 IN 28 D, PO
     Route: 048
     Dates: start: 20111109
  2. DEXAMETHASONE (DEXAMETHASONE) (4 MILLIGRAM, TABLETS) [Suspect]
     Indication: PLASMA CELL MYELOMA
     Dosage: 40 MG, ONCE A WEEK, PO
     Route: 048
     Dates: start: 201111, end: 201210
  3. ZOMETA (ZOLEDRONIC ACID) (UNKNOWN) [Concomitant]
  4. OXYCONTIN (OXYCODONE HYDROCHLORIDE) (TABLETS) [Concomitant]
  5. PERCOCET (OXYCOCET) (TABLETS) [Concomitant]
  6. TRAZODONE HCL (TRAZODONE HYDROCHLORIDE) (TABLETS) [Concomitant]
  7. AVODART (DUTASTERIDE) (CAPSULES) [Concomitant]
  8. PRILOSEC (OMEPRAZOLE) (UNKNOWN) [Concomitant]
  9. LYRICA (PREGABALIN) (CAPSULES) [Concomitant]
  10. XYZAL (LEVOCERTIRIZINE DIHYDROCHLORIDE) (TABLETS) [Concomitant]
  11. ATIVAN (LORAZEPAM) (TABLETS) [Concomitant]
  12. PROCHLORPERAZINE MALEATE (PROCHLORPERAZINE MALEATE) (TABLETS) [Concomitant]
  13. ANUSOL HC (HYDROCORTISONE ACETATE) (CREAM) [Concomitant]
  14. FENTANYL (FENTANYL) (POULTICE OR PATCH) [Concomitant]
  15. OSCAL D3 (CALCIUM CARBONATE) (TABLETS) [Concomitant]
  16. METROGEL (METRONIDAZOLE) (GEL) [Concomitant]
  17. FUROSEMIDE (FUROSEMIDE) (TABLETS) [Concomitant]
  18. MICRO-K (POTASSIUM CHLORIDE) (CAPSULES) [Concomitant]
  19. NEXIUM (ESOMEPRAZOLE) (CAPSULES) [Concomitant]
  20. COZAAR (LOSARTAN POTASSIUM) (TABLETS) [Concomitant]
  21. MAGNESIUM OXIDE (MAGNESIUM OXIDE) (TABLETS) [Concomitant]
  22. ONGLYZA (SAXAGLIPTIN HYDROCHLORIDE) (CAPSULES) [Concomitant]

REACTIONS (2)
  - Neutropenia [None]
  - Hyperglycaemia [None]
